FAERS Safety Report 4627226-6 (Version None)
Quarter: 2005Q2

REPORT INFORMATION
  Report Type: 
  Country: None (occurrence: None)
  Receive Date: 20050401
  Receipt Date: 20050401
  Transmission Date: 20051028
  Serious: Yes (Other)
  Sender: FDA-Public Use
  Company Number: None

PATIENT
  Age: 36 Year
  Sex: Female
  Weight: 82.1011 kg

DRUGS (8)
  1. ABRAXANE [Suspect]
     Dosage: 485MG Q21 DAYS INTRAVENOUS
     Route: 042
     Dates: start: 20050308, end: 20050308
  2. ZOMETA [Concomitant]
  3. FASLODEX [Concomitant]
  4. BEXTRA [Concomitant]
  5. LEVAQUIN [Concomitant]
  6. ATARAX [Concomitant]
  7. XYCONTIN [Concomitant]
  8. ^MARY'S MAGIC MOUTHWASH^ [Concomitant]

REACTIONS (4)
  - BONE PAIN [None]
  - PRURITUS GENERALISED [None]
  - RASH GENERALISED [None]
  - STOMATITIS [None]
